FAERS Safety Report 6827326-6 (Version None)
Quarter: 2010Q3

REPORT INFORMATION
  Report Type: 
  Country: None (occurrence: None)
  Receive Date: 20100709
  Receipt Date: 20070106
  Transmission Date: 20110219
  Serious: No
  Sender: FDA-Public Use
  Company Number: US-PFIZER INC-2007003231

PATIENT
  Age: 51 Year
  Sex: Female

DRUGS (1)
  1. CHANTIX [Suspect]
     Indication: SMOKING CESSATION THERAPY
     Dates: start: 20061010

REACTIONS (3)
  - ABNORMAL DREAMS [None]
  - FATIGUE [None]
  - MIDDLE INSOMNIA [None]
